FAERS Safety Report 7667911-5 (Version None)
Quarter: 2011Q3

REPORT INFORMATION
  Report Type: 
  Country: None (occurrence: None)
  Receive Date: 20110808
  Receipt Date: 20110727
  Transmission Date: 20111222
  Serious: Yes (Other)
  Sender: FDA-Public Use
  Company Number: ES-BIOGENIDEC-2011BI012529

PATIENT
  Age: 33 Year
  Sex: Female

DRUGS (2)
  1. TYSABRI [Suspect]
     Indication: MULTIPLE SCLEROSIS
     Route: 042
     Dates: start: 20070625, end: 20090107
  2. TYSABRI [Suspect]
     Route: 042
     Dates: start: 20090429, end: 20091102

REACTIONS (7)
  - HEADACHE [None]
  - MYELITIS [None]
  - CHEST DISCOMFORT [None]
  - SINUSITIS [None]
  - TYPE I HYPERSENSITIVITY [None]
  - RESPIRATORY TRACT INFECTION [None]
  - DEPRESSED MOOD [None]
